FAERS Safety Report 19256868 (Version 1)
Quarter: 2021Q2

REPORT INFORMATION
  Report Type: Spontaneous
  Country: US (occurrence: US)
  Receive Date: 20210513
  Receipt Date: 20210513
  Transmission Date: 20210717
  Serious: Yes (Life-Threatening, Hospitalization)
  Sender: FDA-Public Use
  Company Number: US-TEVA-2021-US-1910087

PATIENT
  Age: 14 Year
  Sex: Female

DRUGS (3)
  1. LORAZEPAM. [Suspect]
     Active Substance: LORAZEPAM
     Indication: ANTICHOLINERGIC SYNDROME
     Dosage: BEFORE ADMISSION
     Route: 065
  2. LORAZEPAM. [Suspect]
     Active Substance: LORAZEPAM
     Dosage: IN THE EMERGENCY DEPARTMENT
     Route: 065
  3. DIPHENHYDRAMINE. [Suspect]
     Active Substance: DIPHENHYDRAMINE
     Indication: PRODUCT USED FOR UNKNOWN INDICATION
     Dosage: PATIENT INGESTED 100 TABLETS OF DIPHENHYDRAMINE
     Route: 048

REACTIONS (3)
  - Overdose [Unknown]
  - Drug ineffective [Unknown]
  - Anticholinergic syndrome [Recovered/Resolved]
